FAERS Safety Report 6963003-9 (Version None)
Quarter: 2010Q3

REPORT INFORMATION
  Report Type: 
  Country: None (occurrence: None)
  Receive Date: 20100902
  Receipt Date: 20100825
  Transmission Date: 20110219
  Serious: Yes (Hospitalization)
  Sender: FDA-Public Use
  Company Number: IT-ROCHE-723241

PATIENT
  Sex: Female

DRUGS (6)
  1. HERCEPTIN [Suspect]
     Dosage: FREQUENCY:CYCLIC
     Route: 042
     Dates: start: 20100709, end: 20100716
  2. VINORELBINA [Suspect]
     Dosage: FREQUENCY:CYCLIC, DRUG REPORTED AS:VINORELBINA EBEWE
     Route: 042
     Dates: start: 20100709, end: 20100716
  3. TACHIPIRINA [Concomitant]
     Route: 048
  4. RANITIDINA [Concomitant]
     Route: 042
  5. TRIMETON [Concomitant]
     Route: 042
  6. LIMICAN [Concomitant]
     Route: 042

REACTIONS (6)
  - LIP OEDEMA [None]
  - MUCOSAL INFLAMMATION [None]
  - ORAL DISCOMFORT [None]
  - PANCYTOPENIA [None]
  - PYREXIA [None]
  - URTICARIA [None]
